FAERS Safety Report 6237622-1 (Version None)
Quarter: 2009Q2

REPORT INFORMATION
  Report Type: 
  Country: None (occurrence: None)
  Receive Date: 20090619
  Receipt Date: 20090527
  Transmission Date: 20091009
  Serious: Yes (Hospitalization)
  Sender: FDA-Public Use
  Company Number: CO-MERCK-0905COL00006

PATIENT
  Age: 41 Year
  Sex: Male

DRUGS (1)
  1. ISENTRESS [Suspect]
     Indication: HIV INFECTION
     Route: 048
     Dates: start: 20090101, end: 20090526

REACTIONS (4)
  - DYSAESTHESIA [None]
  - FLUSHING [None]
  - HEADACHE [None]
  - PRURITUS [None]
